FAERS Safety Report 24828684 (Version 4)
Quarter: 2025Q1

REPORT INFORMATION
  Report Type: Spontaneous
  Country: US (occurrence: US)
  Receive Date: 20250110
  Receipt Date: 20250317
  Transmission Date: 20250408
  Serious: No
  Sender: BIOGEN
  Company Number: US-BIOGENIDEC-2013BI047089

PATIENT
  Age: 44 Year
  Sex: Male

DRUGS (4)
  1. AVONEX [Suspect]
     Active Substance: INTERFERON BETA-1A
     Indication: Multiple sclerosis
     Dosage: 30 MICROGRAM PER GRAM
     Route: 050
     Dates: start: 20080717
  2. AVONEX [Suspect]
     Active Substance: INTERFERON BETA-1A
  3. AVONEX [Suspect]
     Active Substance: INTERFERON BETA-1A
  4. AVONEX [Suspect]
     Active Substance: INTERFERON BETA-1A

REACTIONS (1)
  - Injection site bruising [Unknown]

NARRATIVE: CASE EVENT DATE: 20130502
